FAERS Safety Report 17830799 (Version 1)
Quarter: 2020Q2

REPORT INFORMATION
  Report Type: Spontaneous
  Country: FR (occurrence: FR)
  Receive Date: 20200527
  Receipt Date: 20200527
  Transmission Date: 20200714
  Serious: Yes (Other)
  Sender: FDA-Public Use
  Company Number: FR-JNJFOC-20200515068

PATIENT
  Age: 47 Year
  Sex: Male

DRUGS (1)
  1. HALDOL DECANOAS [Suspect]
     Active Substance: HALOPERIDOL DECANOATE
     Indication: PRODUCT USED FOR UNKNOWN INDICATION
     Route: 065

REACTIONS (8)
  - Aggression [Unknown]
  - Skin disorder [Unknown]
  - Withdrawal syndrome [Unknown]
  - Hyperreflexia [Unknown]
  - Bone lesion [Unknown]
  - Fall [Unknown]
  - Weight increased [Unknown]
  - Treatment noncompliance [Unknown]
